FAERS Safety Report 12525234 (Version 1)
Quarter: 2016Q3

REPORT INFORMATION
  Report Type: Spontaneous
  Country: US (occurrence: US)
  Receive Date: 20160704
  Receipt Date: 20160704
  Transmission Date: 20161109
  Serious: Yes (Other)
  Sender: FDA-Public Use
  Company Number: US-TEVA-673343USA

PATIENT
  Age: 44 Year
  Sex: Female

DRUGS (1)
  1. ZECUITY [Suspect]
     Active Substance: SUMATRIPTAN SUCCINATE
     Route: 062
     Dates: start: 20160626, end: 20160626

REACTIONS (5)
  - Application site exfoliation [Unknown]
  - Sunburn [Unknown]
  - Product physical issue [Unknown]
  - Application site irritation [Unknown]
  - Application site pain [Unknown]

NARRATIVE: CASE EVENT DATE: 20160626
